FAERS Safety Report 13824042 (Version 11)
Quarter: 2021Q1

REPORT INFORMATION
  Report Type: Report from Study
  Country: BR (occurrence: BR)
  Receive Date: 20170802
  Receipt Date: 20210208
  Transmission Date: 20210419
  Serious: Yes (Other)
  Sender: FDA-Public Use
  Company Number: PHHY2017BR100965

PATIENT
  Age: 47 Year
  Sex: Male
  Weight: 71 kg

DRUGS (4)
  1. COSENTYX [Suspect]
     Active Substance: SECUKINUMAB
     Indication: PSORIASIS
     Dosage: 300 MG, QMO
     Route: 058
     Dates: start: 20160811
  2. COSENTYX [Suspect]
     Active Substance: SECUKINUMAB
     Dosage: UNK
     Route: 058
     Dates: start: 20180111
  3. COSENTYX [Suspect]
     Active Substance: SECUKINUMAB
     Dosage: 2 DF, QMO
     Route: 065
     Dates: start: 20210127
  4. COSENTYX [Suspect]
     Active Substance: SECUKINUMAB
     Indication: PSORIATIC ARTHROPATHY
     Dosage: 1 DF, QMO
     Route: 030
     Dates: start: 201708

REACTIONS (28)
  - Headache [Recovering/Resolving]
  - Skin disorder [Recovering/Resolving]
  - Skin erosion [Recovering/Resolving]
  - Skin exfoliation [Recovering/Resolving]
  - Fall [Unknown]
  - Product dose omission issue [Unknown]
  - Depressed mood [Recovering/Resolving]
  - Arthralgia [Unknown]
  - Limb discomfort [Unknown]
  - Wound [Unknown]
  - Skin fissures [Unknown]
  - Weight decreased [Unknown]
  - Therapeutic response delayed [Unknown]
  - Product availability issue [Recovering/Resolving]
  - Pyrexia [Recovering/Resolving]
  - Illness [Recovering/Resolving]
  - Insomnia [Recovering/Resolving]
  - Scab [Unknown]
  - Generalised oedema [Unknown]
  - Agitation [Unknown]
  - Gait inability [Recovering/Resolving]
  - Vomiting [Recovering/Resolving]
  - Speech disorder [Unknown]
  - Malaise [Recovering/Resolving]
  - Psoriasis [Not Recovered/Not Resolved]
  - Pain [Unknown]
  - Skin discolouration [Recovering/Resolving]
  - Incorrect route of product administration [Unknown]

NARRATIVE: CASE EVENT DATE: 201708
